FAERS Safety Report 4897780-8 (Version None)
Quarter: 2006Q1

REPORT INFORMATION
  Report Type: 
  Country: None (occurrence: None)
  Receive Date: 20060130
  Receipt Date: 20060130
  Transmission Date: 20060701
  Serious: Yes (Hospitalization)
  Sender: FDA-Public Use
  Company Number: None

PATIENT
  Age: 63 Year
  Sex: Male
  Weight: 90 kg

DRUGS (11)
  1. ATORVASTATIN 40 MG PFIZER [Suspect]
     Indication: HYPERLIPIDAEMIA
     Dosage: 40 MG DAILY PO
     Route: 048
  2. GLIPIZIDE [Concomitant]
  3. MEFORMIN [Concomitant]
  4. BENAZEPRIL HCL [Concomitant]
  5. ATENOLOL [Concomitant]
  6. HYDROCHLOROTHIAZIDE [Concomitant]
  7. GABAPENTIN [Concomitant]
  8. PANTOPRAZOLE [Concomitant]
  9. ASPIRIN [Concomitant]
  10. REGULAR INSULIN [Concomitant]
  11. NPH INSULIN [Concomitant]

REACTIONS (1)
  - RHABDOMYOLYSIS [None]
